FAERS Safety Report 15000707 (Version 1)
Quarter: 2018Q2

REPORT INFORMATION
  Report Type: Spontaneous
  Country: CA (occurrence: CA)
  Receive Date: 20180612
  Receipt Date: 20180612
  Transmission Date: 20180711
  Serious: Yes (Death)
  Sender: FDA-Public Use
  Company Number: CA-TEVA-2018-CA-902734

PATIENT
  Age: 17 Year
  Sex: Male

DRUGS (5)
  1. TOPIRAMATE. [Concomitant]
     Active Substance: TOPIRAMATE
  2. VIGABATRIN. [Concomitant]
     Active Substance: VIGABATRIN
  3. VALPROIC ACID. [Concomitant]
     Active Substance: VALPROIC ACID
  4. CEFTRIAXONE SODIUM FOR INJECTION BP [Suspect]
     Active Substance: CEFTRIAXONE SODIUM
     Indication: SEPSIS
     Route: 042
  5. CLONAZEPAM. [Concomitant]
     Active Substance: CLONAZEPAM

REACTIONS (4)
  - Blood potassium increased [Fatal]
  - Cardiac arrest [Fatal]
  - Haemoglobin decreased [Fatal]
  - Haemolysis [Fatal]
